FAERS Safety Report 6736757-4 (Version None)
Quarter: 2010Q2

REPORT INFORMATION
  Report Type: 
  Country: None (occurrence: None)
  Receive Date: 20100521
  Receipt Date: 20100514
  Transmission Date: 20101027
  Serious: Yes (Hospitalization)
  Sender: FDA-Public Use
  Company Number: GB-PFIZER INC-2010048082

PATIENT
  Age: 55 Year
  Sex: Male
  Weight: 81.9 kg

DRUGS (3)
  1. CELECOXIB [Suspect]
     Dosage: 800 MG, UNK
     Route: 048
     Dates: start: 20100309
  2. ZOLEDRONIC ACID [Suspect]
     Dosage: 4 MG, UNK
     Route: 042
     Dates: start: 20100309
  3. ACETAMINOPHEN AND CODEINE PHOSPHATE [Concomitant]
     Dosage: UNK
     Dates: start: 20091101

REACTIONS (2)
  - ARTHRALGIA [None]
  - NERVE COMPRESSION [None]
